FAERS Safety Report 5619255-0 (Version None)
Quarter: 2008Q1

REPORT INFORMATION
  Report Type: 
  Country: None (occurrence: None)
  Receive Date: 20080205
  Receipt Date: 20080125
  Transmission Date: 20080703
  Serious: Yes (Life-Threatening)
  Sender: FDA-Public Use
  Company Number: E2020-02171-SPO-JP

PATIENT
  Age: 82 Year
  Sex: Female
  Weight: 38.5 kg

DRUGS (7)
  1. ARICEPT [Suspect]
     Indication: DEMENTIA ALZHEIMER'S TYPE
     Dosage: 5 MG, 1 IN 1 D, ORAL
     Route: 048
  2. MICARDIS [Concomitant]
  3. ROHYPNOL (FLUNITRAZEPAM) [Concomitant]
  4. CARVEDILOL [Concomitant]
  5. ASPARA K (ASPARTATE POTASSIUM) [Concomitant]
  6. HALCION [Concomitant]
  7. LASIX [Concomitant]

REACTIONS (4)
  - HYPOKALAEMIA [None]
  - SYNCOPE [None]
  - TORSADE DE POINTES [None]
  - VENTRICULAR TACHYCARDIA [None]
